FAERS Safety Report 18116402 (Version 1)
Quarter: 2020Q3

REPORT INFORMATION
  Report Type: Spontaneous
  Country: US (occurrence: US)
  Receive Date: 20200805
  Receipt Date: 20200805
  Transmission Date: 20201103
  Serious: Yes (Hospitalization)
  Sender: FDA-Public Use
  Company Number: US-SUNOVION-2020SUN002264

PATIENT
  Sex: Male
  Weight: 83.9 kg

DRUGS (1)
  1. LATUDA [Suspect]
     Active Substance: LURASIDONE HYDROCHLORIDE
     Indication: BIPOLAR DISORDER
     Dosage: 60 MG, QD
     Route: 048

REACTIONS (7)
  - Constipation [Recovered/Resolved]
  - Muscular weakness [Not Recovered/Not Resolved]
  - Abdominal distension [Recovered/Resolved]
  - Musculoskeletal stiffness [Unknown]
  - Bradykinesia [Not Recovered/Not Resolved]
  - Memory impairment [Not Recovered/Not Resolved]
  - Frustration tolerance decreased [Unknown]
